FAERS Safety Report 8023099-2 (Version None)
Quarter: 2012Q1

REPORT INFORMATION
  Report Type: 
  Country: None (occurrence: None)
  Receive Date: 20120104
  Receipt Date: 20120102
  Transmission Date: 20120608
  Serious: Yes (Hospitalization, Other)
  Sender: FDA-Public Use
  Company Number: BR-ABBOTT-11P-020-0712950-00

PATIENT
  Sex: Male
  Weight: 62 kg

DRUGS (10)
  1. AZATHIOPRINE [Concomitant]
     Indication: IMMUNOSUPPRESSANT DRUG THERAPY
     Dosage: 3 TABLETS DAILY
     Route: 048
  2. HUMIRA [Suspect]
     Indication: CROHN'S DISEASE
     Route: 058
     Dates: start: 20100501, end: 20110801
  3. AZATHIOPRINE [Concomitant]
     Indication: CROHN'S DISEASE
  4. CALCIUM CARBONATE [Concomitant]
     Indication: PRODUCT USED FOR UNKNOWN INDICATION
     Route: 048
  5. ADEROGIL [Concomitant]
     Indication: PRODUCT USED FOR UNKNOWN INDICATION
     Dosage: 8 DROPS A DAY
  6. OMEPRAZOLE [Concomitant]
     Indication: GASTRIC DISORDER
     Route: 048
  7. PREDNISONE TAB [Concomitant]
     Indication: PRODUCT USED FOR UNKNOWN INDICATION
     Route: 048
  8. OMEPRAZOLE [Concomitant]
     Indication: PROPHYLAXIS
  9. VENLAFAXINE [Concomitant]
     Indication: DEPRESSION
     Route: 048
  10. BROMAZEPAM [Concomitant]
     Indication: DEPRESSION
     Route: 048

REACTIONS (14)
  - GASTROINTESTINAL PAIN [None]
  - WEIGHT INCREASED [None]
  - THROMBOSIS IN DEVICE [None]
  - DRUG INEFFECTIVE [None]
  - INTESTINAL FISTULA INFECTION [None]
  - DEPRESSION [None]
  - FISTULA DISCHARGE [None]
  - CROHN'S DISEASE [None]
  - ENTEROCUTANEOUS FISTULA [None]
  - WOUND COMPLICATION [None]
  - PNEUMONIA [None]
  - PAIN [None]
  - WEIGHT DECREASED [None]
  - WRONG TECHNIQUE IN DRUG USAGE PROCESS [None]
